FAERS Safety Report 16611442 (Version 5)
Quarter: 2020Q3

REPORT INFORMATION
  Report Type: Report from Study
  Country: US (occurrence: US)
  Receive Date: 20190722
  Receipt Date: 20200702
  Transmission Date: 20201102
  Serious: No
  Sender: FDA-Public Use
  Company Number: PHEH2019US029896

PATIENT
  Sex: Female

DRUGS (1)
  1. GILENYA [Suspect]
     Active Substance: FINGOLIMOD HYDROCHLORIDE
     Indication: MULTIPLE SCLEROSIS
     Dosage: 0.5 MG, QD
     Route: 048
     Dates: start: 20190225

REACTIONS (8)
  - Tremor [Unknown]
  - Sinusitis [Unknown]
  - Ocular discomfort [Unknown]
  - Photophobia [Unknown]
  - Decreased immune responsiveness [Unknown]
  - Food poisoning [Unknown]
  - Headache [Unknown]
  - Muscle spasms [Unknown]
